FAERS Safety Report 11591249 (Version 1)
Quarter: 2015Q4

REPORT INFORMATION
  Report Type: Spontaneous
  Country: CA (occurrence: CA)
  Receive Date: 20151004
  Receipt Date: 20151004
  Transmission Date: 20160304
  Serious: Yes (Life-Threatening)
  Sender: FDA-Public Use
  Company Number: CA-TEVA-597447ACC

PATIENT
  Age: 54 Year
  Sex: Female
  Weight: 68 kg

DRUGS (1)
  1. ATENOLOL TABLETS, BP [Suspect]
     Active Substance: ATENOLOL
     Indication: HYPERTENSION
     Dosage: 25 MILLIGRAM DAILY;
     Route: 048

REACTIONS (4)
  - Hypotension [Recovered/Resolved]
  - Acute psychosis [Recovered/Resolved]
  - Suicidal ideation [Recovered/Resolved]
  - Cognitive disorder [Recovered/Resolved]
